FAERS Safety Report 7510625-2 (Version None)
Quarter: 2011Q2

REPORT INFORMATION
  Report Type: 
  Country: None (occurrence: None)
  Receive Date: 20110530
  Receipt Date: 20110518
  Transmission Date: 20111010
  Serious: Yes (Other)
  Sender: FDA-Public Use
  Company Number: US-ROCHE-552267

PATIENT
  Sex: Female
  Weight: 49.9 kg

DRUGS (1)
  1. ACCUTANE [Suspect]
     Indication: ACNE
     Dosage: SHE WAS TAKING ACCUTANE 40 MG MONDAY, WEDNESDAY AND FRIDAY.
     Route: 065
     Dates: start: 19961211, end: 19970421

REACTIONS (13)
  - CROHN'S DISEASE [None]
  - FIBROMYALGIA [None]
  - DEPRESSION [None]
  - INFLAMMATORY BOWEL DISEASE [None]
  - RAYNAUD'S PHENOMENON [None]
  - BASEDOW'S DISEASE [None]
  - PSORIATIC ARTHROPATHY [None]
  - ANAL FISSURE [None]
  - COLITIS ULCERATIVE [None]
  - ANKYLOSING SPONDYLITIS [None]
  - ANAEMIA OF CHRONIC DISEASE [None]
  - UVEITIS [None]
  - IRITIS [None]
